FAERS Safety Report 7124000-6 (Version None)
Quarter: 2010Q4

REPORT INFORMATION
  Report Type: 
  Country: None (occurrence: None)
  Receive Date: 20101126
  Receipt Date: 20101108
  Transmission Date: 20110411
  Serious: No
  Sender: FDA-Public Use
  Company Number: US-PFIZER INC-US-WYE-H17055510

PATIENT
  Sex: Male

DRUGS (2)
  1. PHOSPHOLINE IODIDE [Suspect]
     Dosage: 1 DROP EACH EYE WEEKLY
     Route: 047
  2. MIRALAX [Concomitant]

REACTIONS (1)
  - DRUG INEFFECTIVE [None]
